FAERS Safety Report 9950392 (Version 1)
Quarter: 2014Q1

REPORT INFORMATION
  Report Type: Spontaneous
  Country: JP (occurrence: JP)
  Receive Date: 20140304
  Receipt Date: 20140304
  Transmission Date: 20141002
  Serious: Yes (Hospitalization)
  Sender: FDA-Public Use
  Company Number: PHHY2014JP024298

PATIENT
  Sex: 0

DRUGS (4)
  1. ONBREZ [Suspect]
     Dosage: 150 UG, UNK
     Route: 055
  2. ASMANEX [Concomitant]
     Dosage: UNK
  3. SYMBICORT [Concomitant]
     Dosage: UNK
  4. ADOAIR [Concomitant]
     Dosage: UNK UKN, UNK

REACTIONS (2)
  - Asthma [Unknown]
  - Nasopharyngitis [Unknown]
